FAERS Safety Report 15954785 (Version 1)
Quarter: 2019Q1

REPORT INFORMATION
  Report Type: Spontaneous
  Country: EG (occurrence: EG)
  Receive Date: 20190213
  Receipt Date: 20190213
  Transmission Date: 20190417
  Serious: Yes (Death, Hospitalization, Other)
  Sender: FDA-Public Use
  Company Number: EG-SA-2019SA039787

PATIENT
  Age: 3 Year
  Sex: Female
  Weight: 10 kg

DRUGS (1)
  1. CEREZYME [Suspect]
     Active Substance: IMIGLUCERASE
     Indication: GAUCHER^S DISEASE TYPE III
     Dosage: 6 MG/KG, QOW
     Route: 041
     Dates: start: 20161010

REACTIONS (2)
  - Acute respiratory distress syndrome [Fatal]
  - Pneumonia [Unknown]

NARRATIVE: CASE EVENT DATE: 20181021
